FAERS Safety Report 6639467-7 (Version None)
Quarter: 2010Q1

REPORT INFORMATION
  Report Type: 
  Country: None (occurrence: None)
  Receive Date: 20100315
  Receipt Date: 20100301
  Transmission Date: 20100710
  Serious: Yes (Death, Hospitalization)
  Sender: FDA-Public Use
  Company Number: 2010AC000058

PATIENT
  Age: 64 Year
  Sex: Female

DRUGS (54)
  1. DIGOXIN [Suspect]
     Dosage: 0.25 MG; QD; PO
     Route: 048
     Dates: start: 20030303, end: 20070101
  2. ALPRAZOLAM [Concomitant]
  3. WARFARIN SODIUM [Concomitant]
  4. PROPAFENONE HCL [Concomitant]
  5. ATROVENT [Concomitant]
  6. HYDROCHLOROTHIAZIDE [Concomitant]
  7. TRIMOX [Concomitant]
  8. ACETAMINOPHEN AND HYDROCODONE BITARTRATE [Concomitant]
  9. PROPO-N/APAP [Concomitant]
  10. TIAZAC [Concomitant]
  11. DOXEPIN HCL [Concomitant]
  12. DILTIAZEM HCL [Concomitant]
  13. IPRATROPIUM [Concomitant]
  14. CYCLOBENZAPRINE [Concomitant]
  15. HYDROCODONE [Concomitant]
  16. NEURONTIN [Concomitant]
  17. ISOSORBIDE DINITRATE [Concomitant]
  18. ARTHROTEC [Concomitant]
  19. COMBIVENT [Concomitant]
  20. FUROSEMIDE [Concomitant]
  21. POTASSIUM CHLORIDE [Concomitant]
  22. ZOCOR [Concomitant]
  23. TIZANIDINE HCL [Concomitant]
  24. CEPHALEXIN [Concomitant]
  25. TEQUIN [Concomitant]
  26. PREDNISONE [Concomitant]
  27. GABAPENTIN [Concomitant]
  28. LEVAQUIN [Concomitant]
  29. METHADOSE [Concomitant]
  30. OXYCONTIN [Concomitant]
  31. OXYCODONE HCL AND ACETAMINOPHEN [Concomitant]
  32. ATENOLOL [Concomitant]
  33. BENICAR [Concomitant]
  34. RYTHMOL [Concomitant]
  35. METOLAZONE [Concomitant]
  36. CHLORTHALIDONE [Concomitant]
  37. AMOXICILLIN [Concomitant]
  38. FERRETTS [Concomitant]
  39. GLYCOLAX [Concomitant]
  40. METOCLOPRAM [Concomitant]
  41. PROMETHAZINE [Concomitant]
  42. LISINOPRIL [Concomitant]
  43. COUMADIN [Concomitant]
  44. POTASSIUM [Concomitant]
  45. XANAX [Concomitant]
  46. DUONEB [Concomitant]
  47. . [Concomitant]
  48. . [Concomitant]
  49. . [Concomitant]
  50. . [Concomitant]
  51. . [Concomitant]
  52. CARDIZEM [Concomitant]
  53. . [Concomitant]
  54. . [Concomitant]

REACTIONS (21)
  - CARDIAC FAILURE CONGESTIVE [None]
  - CAROTID ARTERIOSCLEROSIS [None]
  - CERVICOBRACHIAL SYNDROME [None]
  - CONFUSIONAL STATE [None]
  - ECONOMIC PROBLEM [None]
  - GASTROINTESTINAL HAEMORRHAGE [None]
  - HERNIA [None]
  - HYPOKALAEMIA [None]
  - HYPOTENSION [None]
  - INCISIONAL HERNIA [None]
  - METABOLIC ACIDOSIS [None]
  - MULTIPLE INJURIES [None]
  - MYOCARDIAL INFARCTION [None]
  - OEDEMA PERIPHERAL [None]
  - PNEUMONIA [None]
  - POST LAMINECTOMY SYNDROME [None]
  - RENAL FAILURE ACUTE [None]
  - ROTATOR CUFF REPAIR [None]
  - SMALL INTESTINAL OBSTRUCTION [None]
  - SPINAL DECOMPRESSION [None]
  - TENODESIS [None]
